FAERS Safety Report 8082940-8 (Version None)
Quarter: 2012Q1

REPORT INFORMATION
  Report Type: 
  Country: None (occurrence: None)
  Receive Date: 20120127
  Receipt Date: 20110308
  Transmission Date: 20120608
  Serious: No
  Sender: FDA-Public Use
  Company Number: US-ABBOTT-11P-163-0710132-00

PATIENT
  Age: 68 Year
  Sex: Female

DRUGS (6)
  1. POTASSIUM [Concomitant]
     Indication: ELECTROLYTE SUBSTITUTION THERAPY
  2. PREDNISONE TAB [Concomitant]
     Indication: PAIN
  3. LASIX [Concomitant]
     Indication: FLUID RETENTION
     Dosage: DAILY
  4. POTASSIUM [Concomitant]
     Indication: POLYURIA
     Dosage: DAILY
  5. HUMIRA [Suspect]
  6. HUMIRA [Suspect]
     Indication: RHEUMATOID ARTHRITIS

REACTIONS (1)
  - DRUG INEFFECTIVE [None]
